FAERS Safety Report 14879274 (Version 53)
Quarter: 2020Q4

REPORT INFORMATION
  Report Type: Other
  Country: CA (occurrence: CA)
  Receive Date: 20180511
  Receipt Date: 20201226
  Transmission Date: 20210113
  Serious: Yes (Other)
  Sender: FDA-Public Use
  Company Number: CA-ROCHE-2020907

PATIENT
  Age: 27 Year
  Sex: Female
  Weight: 77 kg

DRUGS (64)
  1. ACTEMRA [Suspect]
     Active Substance: TOCILIZUMAB
     Route: 042
     Dates: start: 20190822, end: 20190822
  2. ACTEMRA [Suspect]
     Active Substance: TOCILIZUMAB
     Route: 042
     Dates: start: 20191003, end: 20191003
  3. ACTEMRA [Suspect]
     Active Substance: TOCILIZUMAB
     Route: 042
     Dates: start: 20200430, end: 20200430
  4. ACTEMRA [Suspect]
     Active Substance: TOCILIZUMAB
     Route: 042
     Dates: start: 20200515, end: 20200611
  5. ACTEMRA [Suspect]
     Active Substance: TOCILIZUMAB
     Dosage: ONGOING. B2098 30-JUN-2022
     Route: 042
     Dates: start: 20201029, end: 20201029
  6. ACTEMRA [Suspect]
     Active Substance: TOCILIZUMAB
     Route: 042
     Dates: start: 20201210
  7. FLEXERIL [Concomitant]
     Active Substance: CYCLOBENZAPRINE HYDROCHLORIDE
     Indication: PRODUCT USED FOR UNKNOWN INDICATION
  8. IRON [Concomitant]
     Active Substance: IRON
     Indication: ANAEMIA
     Route: 048
     Dates: start: 20190227
  9. ACTEMRA [Suspect]
     Active Substance: TOCILIZUMAB
     Indication: STILL^S DISEASE
     Dosage: INFUSION NUMBER 14
     Route: 042
     Dates: start: 20171030
  10. ACTEMRA [Suspect]
     Active Substance: TOCILIZUMAB
     Dosage: INFUSION NUMBER 7
     Route: 042
     Dates: start: 20170807
  11. ACTEMRA [Suspect]
     Active Substance: TOCILIZUMAB
     Dosage: INFUSION #24
     Route: 042
     Dates: start: 20180423
  12. ACTEMRA [Suspect]
     Active Substance: TOCILIZUMAB
     Route: 042
     Dates: start: 20190418, end: 20190418
  13. ACTEMRA [Suspect]
     Active Substance: TOCILIZUMAB
     Route: 042
     Dates: start: 20190502, end: 20190502
  14. ACTEMRA [Suspect]
     Active Substance: TOCILIZUMAB
     Route: 042
     Dates: start: 20190711, end: 20190711
  15. ACTEMRA [Suspect]
     Active Substance: TOCILIZUMAB
     Route: 042
     Dates: start: 20200416
  16. ACTEMRA [Suspect]
     Active Substance: TOCILIZUMAB
     Route: 042
     Dates: start: 20200625
  17. ACTEMRA [Suspect]
     Active Substance: TOCILIZUMAB
     Route: 042
     Dates: start: 20191003, end: 20191003
  18. ACTEMRA [Suspect]
     Active Substance: TOCILIZUMAB
     Route: 042
     Dates: start: 20190306, end: 20190306
  19. ACTEMRA [Suspect]
     Active Substance: TOCILIZUMAB
     Route: 042
     Dates: start: 20190530, end: 20190530
  20. ACTEMRA [Suspect]
     Active Substance: TOCILIZUMAB
     Route: 042
     Dates: start: 20200109, end: 20200123
  21. ACTEMRA [Suspect]
     Active Substance: TOCILIZUMAB
     Route: 042
     Dates: start: 20200402, end: 20200402
  22. ACTEMRA [Suspect]
     Active Substance: TOCILIZUMAB
     Dosage: B2098 30-JUN-2022
     Route: 042
     Dates: start: 20200929, end: 20200929
  23. ACTEMRA [Suspect]
     Active Substance: TOCILIZUMAB
     Dosage: B2098 30-JUN-2022
     Route: 042
     Dates: start: 20201015, end: 20201015
  24. NUVARING [Concomitant]
     Active Substance: ETHINYL ESTRADIOL\ETONOGESTREL
     Indication: PRODUCT USED FOR UNKNOWN INDICATION
  25. ACTEMRA [Suspect]
     Active Substance: TOCILIZUMAB
     Dosage: INFUSION 26
     Route: 042
     Dates: start: 20180522
  26. ACTEMRA [Suspect]
     Active Substance: TOCILIZUMAB
     Route: 042
     Dates: start: 20190124, end: 20190124
  27. ACTEMRA [Suspect]
     Active Substance: TOCILIZUMAB
     Route: 042
     Dates: start: 20190404, end: 20190404
  28. ACTEMRA [Suspect]
     Active Substance: TOCILIZUMAB
     Route: 042
     Dates: start: 20200206, end: 20200206
  29. ACTEMRA [Suspect]
     Active Substance: TOCILIZUMAB
     Route: 042
     Dates: start: 20200709, end: 20200709
  30. METHOTREXATE. [Suspect]
     Active Substance: METHOTREXATE
     Indication: PAIN
     Route: 065
     Dates: start: 2019
  31. PLAQUENIL [Concomitant]
     Active Substance: HYDROXYCHLOROQUINE SULFATE
     Dates: start: 20200724
  32. ACTEMRA [Suspect]
     Active Substance: TOCILIZUMAB
     Indication: STILL^S DISEASE
     Route: 042
     Dates: start: 20170515, end: 20180717
  33. ACTEMRA [Suspect]
     Active Substance: TOCILIZUMAB
     Dosage: INFUSION #17
     Route: 042
     Dates: start: 20180115
  34. ACTEMRA [Suspect]
     Active Substance: TOCILIZUMAB
     Dosage: INFUSION #23
     Route: 042
     Dates: start: 20180410
  35. ACTEMRA [Suspect]
     Active Substance: TOCILIZUMAB
     Route: 042
     Dates: start: 20181220, end: 20181220
  36. ACTEMRA [Suspect]
     Active Substance: TOCILIZUMAB
     Route: 042
     Dates: start: 20190207, end: 20190207
  37. ACTEMRA [Suspect]
     Active Substance: TOCILIZUMAB
     Route: 042
     Dates: start: 20190613, end: 20190627
  38. ACTEMRA [Suspect]
     Active Substance: TOCILIZUMAB
     Route: 042
     Dates: start: 20191031, end: 20191031
  39. ACTEMRA [Suspect]
     Active Substance: TOCILIZUMAB
     Route: 042
     Dates: start: 20191128, end: 20191128
  40. ACTEMRA [Suspect]
     Active Substance: TOCILIZUMAB
     Route: 042
     Dates: start: 20191212, end: 20191212
  41. ACTEMRA [Suspect]
     Active Substance: TOCILIZUMAB
     Route: 042
     Dates: start: 20190808
  42. ACTEMRA [Suspect]
     Active Substance: TOCILIZUMAB
     Dosage: INFUSION NUMBER 14
     Route: 042
     Dates: start: 20171113
  43. ACTEMRA [Suspect]
     Active Substance: TOCILIZUMAB
     Route: 042
     Dates: start: 20180827, end: 20181203
  44. ACTEMRA [Suspect]
     Active Substance: TOCILIZUMAB
     Route: 042
     Dates: start: 20190111, end: 20190111
  45. ACTEMRA [Suspect]
     Active Substance: TOCILIZUMAB
     Route: 042
     Dates: start: 20190905, end: 20190905
  46. ACTEMRA [Suspect]
     Active Substance: TOCILIZUMAB
     Route: 042
  47. COLACE [Concomitant]
     Active Substance: DOCUSATE SODIUM
     Indication: PRODUCT USED FOR UNKNOWN INDICATION
  48. ACTEMRA [Suspect]
     Active Substance: TOCILIZUMAB
     Route: 042
     Dates: start: 2018
  49. ACTEMRA [Suspect]
     Active Substance: TOCILIZUMAB
     Route: 042
     Dates: start: 20191017, end: 20191017
  50. ACTEMRA [Suspect]
     Active Substance: TOCILIZUMAB
     Route: 042
     Dates: start: 20191224, end: 20191224
  51. ACTEMRA [Suspect]
     Active Substance: TOCILIZUMAB
     Route: 042
     Dates: start: 20200318, end: 20200318
  52. ACTEMRA [Suspect]
     Active Substance: TOCILIZUMAB
     Dosage: ADDITIONAL BATCH/LOT FROM 17-SEP-2020: B2098 30-JUN-2022
     Route: 042
     Dates: start: 20200723
  53. INDOCID [Concomitant]
     Active Substance: INDOMETHACIN
     Indication: PRODUCT USED FOR UNKNOWN INDICATION
  54. PREVACID [Concomitant]
     Active Substance: LANSOPRAZOLE
     Indication: PRODUCT USED FOR UNKNOWN INDICATION
  55. PREDNISONE. [Concomitant]
     Active Substance: PREDNISONE
     Indication: PRODUCT USED FOR UNKNOWN INDICATION
  56. SULFASALAZINE. [Concomitant]
     Active Substance: SULFASALAZINE
     Dates: start: 20200724
  57. ACTEMRA [Suspect]
     Active Substance: TOCILIZUMAB
     Dosage: INFUSION NUMBER 02
     Route: 042
     Dates: start: 20170529
  58. ACTEMRA [Suspect]
     Active Substance: TOCILIZUMAB
     Route: 042
     Dates: start: 20190221, end: 20190221
  59. ACTEMRA [Suspect]
     Active Substance: TOCILIZUMAB
     Route: 042
     Dates: start: 20190321, end: 20190321
  60. ACTEMRA [Suspect]
     Active Substance: TOCILIZUMAB
     Route: 042
     Dates: start: 20190725, end: 20190725
  61. ACTEMRA [Suspect]
     Active Substance: TOCILIZUMAB
     Route: 042
     Dates: start: 20191114, end: 20191114
  62. ACTEMRA [Suspect]
     Active Substance: TOCILIZUMAB
     Route: 042
     Dates: start: 20200220, end: 20200305
  63. ACTEMRA [Suspect]
     Active Substance: TOCILIZUMAB
     Route: 042
     Dates: start: 20190822, end: 20190822
  64. ACTEMRA [Suspect]
     Active Substance: TOCILIZUMAB
     Route: 042
     Dates: start: 20201112

REACTIONS (49)
  - Infusion related reaction [Recovering/Resolving]
  - Productive cough [Not Recovered/Not Resolved]
  - Pain in extremity [Unknown]
  - Arthropathy [Unknown]
  - Syncope [Recovered/Resolved]
  - Sinusitis [Not Recovered/Not Resolved]
  - Back pain [Not Recovered/Not Resolved]
  - Intentional underdose [Unknown]
  - Blood pressure diastolic decreased [Unknown]
  - Pharyngitis [Not Recovered/Not Resolved]
  - Diarrhoea [Unknown]
  - Arthralgia [Unknown]
  - Fatigue [Recovered/Resolved]
  - Vascular rupture [Unknown]
  - Anaemia [Not Recovered/Not Resolved]
  - Blood pressure diastolic increased [Unknown]
  - Arthritis [Unknown]
  - Nasopharyngitis [Unknown]
  - Fatigue [Not Recovered/Not Resolved]
  - Vomiting [Unknown]
  - Respiratory tract infection [Not Recovered/Not Resolved]
  - Catheter site bruise [Unknown]
  - Off label use [Unknown]
  - Face oedema [Unknown]
  - Ecchymosis [Unknown]
  - Bronchitis [Recovered/Resolved]
  - Arthralgia [Unknown]
  - Erythema [Not Recovered/Not Resolved]
  - Abdominal pain [Recovered/Resolved]
  - Gastroenteritis [Recovered/Resolved]
  - Pelvic pain [Unknown]
  - Pain [Unknown]
  - Chills [Recovered/Resolved]
  - Pyrexia [Recovered/Resolved]
  - Investigation abnormal [Not Recovered/Not Resolved]
  - Nausea [Recovered/Resolved]
  - Weight decreased [Recovering/Resolving]
  - Heart rate increased [Unknown]
  - Incorrect dose administered [Unknown]
  - Headache [Unknown]
  - Oedema peripheral [Unknown]
  - Pyrexia [Recovered/Resolved]
  - Bursitis [Unknown]
  - Oropharyngeal pain [Recovered/Resolved]
  - Hypotension [Unknown]
  - Blood pressure systolic abnormal [Unknown]
  - Heart rate decreased [Not Recovered/Not Resolved]
  - Blood pressure diastolic abnormal [Unknown]
  - Migraine [Unknown]

NARRATIVE: CASE EVENT DATE: 20171223
